FAERS Safety Report 23107124 (Version 1)
Quarter: 2023Q4

REPORT INFORMATION
  Report Type: Spontaneous
  Country: US (occurrence: US)
  Receive Date: 20231026
  Receipt Date: 20231026
  Transmission Date: 20240110
  Serious: No
  Sender: FDA-Public Use
  Company Number: US-ASCENDIS PHARMA-2023US002843

PATIENT

DRUGS (5)
  1. SKYTROFA [Suspect]
     Active Substance: LONAPEGSOMATROPIN-TCGD
     Indication: Short stature
     Dosage: 7.6 MILLIGRAM, WEEKLY
     Dates: start: 20230224
  2. ERYTHROMYCIN [ERYTHROMYCIN ESTOLATE] [Concomitant]
     Dosage: 5 MILLIGRAM/GM
  3. NORDITROPIN [Concomitant]
     Active Substance: SOMATROPIN
     Indication: Product used for unknown indication
     Dosage: 10/1.5ML
  4. NORDITROPIN [Concomitant]
     Active Substance: SOMATROPIN
     Dosage: 5/1.5ML
  5. NORDITROPIN [Concomitant]
     Active Substance: SOMATROPIN
     Dosage: 10 MILLIGRAM/1.5ML

REACTIONS (3)
  - Affective disorder [Unknown]
  - Treatment noncompliance [Unknown]
  - Off label use [Not Recovered/Not Resolved]
